FAERS Safety Report 16041669 (Version 1)
Quarter: 2019Q1

REPORT INFORMATION
  Report Type: Spontaneous
  Country: US (occurrence: US)
  Receive Date: 20190207
  Receipt Date: 20190207
  Transmission Date: 20190418
  Serious: No
  Sender: FDA-Public Use
  Company Number: None

PATIENT
  Age: 36 Year
  Sex: Female

DRUGS (1)
  1. TAFINLAR [Suspect]
     Active Substance: DABRAFENIB MESYLATE
     Route: 048
     Dates: start: 201810

REACTIONS (6)
  - Confusional state [None]
  - Pyrexia [None]
  - Product dose omission [None]
  - Rash [None]
  - Insurance issue [None]
  - Joint swelling [None]

NARRATIVE: CASE EVENT DATE: 20181101
